FAERS Safety Report 19975736 (Version 2)
Quarter: 2022Q4

REPORT INFORMATION
  Report Type: Report from Study
  Country: BR (occurrence: BR)
  Receive Date: 20211021
  Receipt Date: 20221116
  Transmission Date: 20230113
  Serious: Yes (Hospitalization, Disabling)
  Sender: FDA-Public Use
  Company Number: BR-ABBVIE-21K-020-4125390-00

PATIENT
  Age: 55 Year
  Sex: Male
  Weight: 90 kg

DRUGS (1)
  1. RINVOQ [Suspect]
     Active Substance: UPADACITINIB
     Indication: Rheumatoid arthritis
     Dosage: UNSPECIFIED DOSE
     Route: 048
     Dates: start: 20211007

REACTIONS (6)
  - Rheumatoid arthritis [Unknown]
  - Gait inability [Unknown]
  - Hypoaesthesia [Unknown]
  - Pain [Unknown]
  - Skin mass [Unknown]
  - Bone swelling [Unknown]

NARRATIVE: CASE EVENT DATE: 20210927
